FAERS Safety Report 5457257-8 (Version None)
Quarter: 2007Q3

REPORT INFORMATION
  Report Type: 
  Country: None (occurrence: None)
  Receive Date: 20070918
  Receipt Date: 20070202
  Transmission Date: 20080115
  Serious: No
  Sender: FDA-Public Use
  Company Number: US-ASTRAZENECA-2007UW02320

PATIENT
  Age: 22 Year
  Sex: Male
  Weight: 77.1 kg

DRUGS (1)
  1. SEROQUEL [Suspect]
     Indication: MANIA
     Route: 048
     Dates: start: 20060801

REACTIONS (7)
  - CRYING [None]
  - DISTURBANCE IN ATTENTION [None]
  - DYSKINESIA [None]
  - EMOTIONAL DISORDER [None]
  - HEADACHE [None]
  - PSYCHOMOTOR SKILLS IMPAIRED [None]
  - TINNITUS [None]
